FAERS Safety Report 4958214-8 (Version None)
Quarter: 2006Q1

REPORT INFORMATION
  Report Type: 
  Country: None (occurrence: None)
  Receive Date: 20060330
  Receipt Date: 20060320
  Transmission Date: 20060701
  Serious: Yes (Disabling)
  Sender: FDA-Public Use
  Company Number: GB-ROCHE-442062

PATIENT
  Sex: Female

DRUGS (4)
  1. XENICAL [Suspect]
     Indication: OBESITY
     Route: 048
     Dates: start: 20040615, end: 20051215
  2. CHLORPROMAZINE [Concomitant]
     Route: 048
  3. VENLAFAXINE HCL [Concomitant]
     Dosage: ONE DOSE OF 75MG AND ONE DOSE OF 150MG GIVEN DAILY.
     Route: 048
  4. THYROXINE [Concomitant]
     Route: 048

REACTIONS (2)
  - DISEASE PROGRESSION [None]
  - PSYCHIATRIC SYMPTOM [None]
